FAERS Safety Report 6721978-7 (Version None)
Quarter: 2010Q2

REPORT INFORMATION
  Report Type: 
  Country: None (occurrence: None)
  Receive Date: 20100512
  Receipt Date: 20100506
  Transmission Date: 20101027
  Serious: Yes (Other)
  Sender: FDA-Public Use
  Company Number: B0639041A

PATIENT
  Sex: Male

DRUGS (2)
  1. ZOVIRAX [Suspect]
     Indication: HERPES ZOSTER
     Dosage: 500MG PER DAY
     Route: 042
     Dates: start: 20100305, end: 20100305
  2. ZOVIRAX [Suspect]
     Dosage: 125MG PER DAY
     Route: 042
     Dates: start: 20100306, end: 20100311

REACTIONS (2)
  - ALTERED STATE OF CONSCIOUSNESS [None]
  - DEPRESSED LEVEL OF CONSCIOUSNESS [None]
